FAERS Safety Report 21713927 (Version 1)
Quarter: 2022Q4

REPORT INFORMATION
  Report Type: Spontaneous
  Country: US (occurrence: None)
  Receive Date: 20221210
  Receipt Date: 20221210
  Transmission Date: 20230113
  Serious: Yes (Life-Threatening)
  Sender: FDA-Public Use
  Company Number: None

PATIENT
  Age: 31 Year
  Sex: Female
  Weight: 94.5 kg

DRUGS (13)
  1. CLOZAPINE [Suspect]
     Active Substance: CLOZAPINE
     Dates: start: 20170620
  2. CLOZAPINE [Concomitant]
     Active Substance: CLOZAPINE
  3. LAMOTRIGINE [Concomitant]
     Active Substance: LAMOTRIGINE
  4. FLUVOXAMINE [Concomitant]
     Active Substance: FLUVOXAMINE
  5. XIGDUO XR [Concomitant]
     Active Substance: DAPAGLIFLOZIN PROPANEDIOL\METFORMIN HYDROCHLORIDE
  6. Trulicity (although we can^t get this right now) [Concomitant]
  7. LINZESS [Concomitant]
     Active Substance: LINACLOTIDE
  8. PEPCID [Concomitant]
     Active Substance: FAMOTIDINE
  9. DONEPEZIL [Concomitant]
     Active Substance: DONEPEZIL
  10. VITAMIN B12 [Concomitant]
     Active Substance: CYANOCOBALAMIN
  11. E [Concomitant]
  12. BIOTIN [Concomitant]
     Active Substance: BIOTIN
  13. D [Concomitant]

REACTIONS (3)
  - Anxiety [None]
  - Hallucination [None]
  - Drug monitoring procedure not performed [None]

NARRATIVE: CASE EVENT DATE: 20220615
